FAERS Safety Report 25859853 (Version 1)
Quarter: 2025Q3

REPORT INFORMATION
  Report Type: Spontaneous
  Country: US (occurrence: None)
  Receive Date: 20250926
  Receipt Date: 20250926
  Transmission Date: 20251020
  Serious: Yes (unspecified)
  Sender: FDA-CTU
  Company Number: None

PATIENT
  Age: 63 Year
  Sex: Male

DRUGS (1)
  1. CARVYKTI [Suspect]
     Active Substance: CILTACABTAGENE AUTOLEUCEL
     Indication: Plasma cell myeloma
     Dates: start: 20250818, end: 20250818

REACTIONS (2)
  - Haemophagocytic lymphohistiocytosis [None]
  - Haemophagocytic lymphohistiocytosis [None]

NARRATIVE: CASE EVENT DATE: 20250827
